FAERS Safety Report 7541930-1 (Version None)
Quarter: 2011Q2

REPORT INFORMATION
  Report Type: 
  Country: None (occurrence: None)
  Receive Date: 20110606
  Receipt Date: 20110601
  Transmission Date: 20111010
  Serious: Yes (Hospitalization)
  Sender: FDA-Public Use
  Company Number: 2004-111868-NL

PATIENT
  Age: 27 Year
  Sex: Female
  Weight: 58 kg

DRUGS (1)
  1. IMPLANON [Suspect]
     Indication: CONTRACEPTION
     Dosage: 1DF; SC
     Route: 058
     Dates: start: 20030908

REACTIONS (9)
  - SCAR [None]
  - HAEMORRHAGE [None]
  - DYSAESTHESIA [None]
  - ENDOMETRIAL DISORDER [None]
  - DEVICE DISLOCATION [None]
  - AMENORRHOEA [None]
  - INCORRECT DRUG ADMINISTRATION DURATION [None]
  - OVARIAN CYST [None]
  - INFERTILITY [None]
